FAERS Safety Report 5719314-8 (Version None)
Quarter: 2008Q2

REPORT INFORMATION
  Report Type: 
  Country: None (occurrence: None)
  Receive Date: 20080428
  Receipt Date: 20080421
  Transmission Date: 20081010
  Serious: Yes (Other)
  Sender: FDA-Public Use
  Company Number: PHBS2008DE04154

PATIENT
  Age: 69 Year
  Sex: Female

DRUGS (2)
  1. DICLOFENAC SODIUM [Suspect]
     Route: 030
  2. METAMIZOLE [Suspect]

REACTIONS (14)
  - ACUTE GENERALISED EXANTHEMATOUS PUSTULOSIS [None]
  - BIOPSY SKIN ABNORMAL [None]
  - HYPERTENSION [None]
  - LEUKOCYTOSIS [None]
  - LIPOMATOSIS [None]
  - METAPLASIA [None]
  - NODULE [None]
  - PYREXIA [None]
  - RASH PUSTULAR [None]
  - RED BLOOD CELL SEDIMENTATION RATE INCREASED [None]
  - RENAL CYST [None]
  - SKIN INFLAMMATION [None]
  - SKIN TEST POSITIVE [None]
  - VERTIGO [None]
